FAERS Safety Report 4396313-2 (Version None)
Quarter: 2004Q3

REPORT INFORMATION
  Report Type: 
  Country: None (occurrence: None)
  Receive Date: 20040713
  Receipt Date: 20040701
  Transmission Date: 20050211
  Serious: Yes (Other)
  Sender: FDA-Public Use
  Company Number: FR-GLAXOSMITHKLINE-B0337784A

PATIENT
  Sex: Male

DRUGS (1)
  1. PAROXETINE HCL [Suspect]
     Indication: ILL-DEFINED DISORDER
     Dosage: 10MG PER DAY
     Route: 048
     Dates: start: 20040622

REACTIONS (3)
  - DIPLOPIA [None]
  - HYPONATRAEMIA [None]
  - IIIRD NERVE PARALYSIS [None]
